FAERS Safety Report 8575066-8 (Version None)
Quarter: 2012Q3

REPORT INFORMATION
  Report Type: 
  Country: None (occurrence: None)
  Receive Date: 20120807
  Receipt Date: 20120727
  Transmission Date: 20120928
  Serious: Yes (Hospitalization)
  Sender: FDA-Public Use
  Company Number: US-BAYER-2012-076251

PATIENT
  Age: 48 Year
  Sex: Female
  Weight: 86.1 kg

DRUGS (14)
  1. CIPROFLOXACIN HCL [Concomitant]
     Dosage: 500 MG, UNK
     Route: 048
  2. MOTRIN [Concomitant]
     Dosage: 800 MG, PRN
  3. TOPAMAX [Concomitant]
     Dosage: 25 MG, DAILY
  4. YAZ [Suspect]
     Indication: OVARIAN CYST
  5. PHENERGAN HCL [Concomitant]
     Dosage: 25 MG, UNK
     Route: 030
  6. TYLENOL [Concomitant]
     Dosage: UNK UNK, PRN
  7. VICODIN [Concomitant]
     Dosage: UNK UNK, PRN
  8. FLUOCINOLONE ACETONIDE [Concomitant]
     Dosage: 0.01 %, UNK
     Route: 001
  9. FLEXERIL [Concomitant]
     Dosage: 10 MG, UNK
  10. ACETAMINOPHEN W/ PROPOXYPHENE HCL [Concomitant]
     Dosage: 100-650 MG
  11. B-COMPLEX [VITAMIN B NOS] [Concomitant]
  12. MULTI-VITAMIN [Concomitant]
  13. MAXALT [Concomitant]
     Dosage: 5 MG, UNK
  14. TORADOL [Concomitant]
     Dosage: 30 MG, UNK
     Route: 030

REACTIONS (1)
  - INTRACRANIAL VENOUS SINUS THROMBOSIS [None]
